FAERS Safety Report 5109844-4 (Version None)
Quarter: 2006Q3

REPORT INFORMATION
  Report Type: 
  Country: None (occurrence: None)
  Receive Date: 20060919
  Receipt Date: 20060919
  Transmission Date: 20061208
  Serious: Yes (Death)
  Sender: FDA-Public Use
  Company Number: None

PATIENT
  Age: 54 Year
  Sex: Male
  Weight: 122.4712 kg

DRUGS (2)
  1. CYPHER STENT CORDIS [Suspect]
     Indication: CORONARY ARTERY DISEASE
     Dosage: INTRACARDIA
     Route: 016
     Dates: start: 20051016, end: 20060310
  2. CYPHER STENT CORDIS [Suspect]
     Indication: CORONARY ARTERY DISEASE
     Dosage: INTRACARDIA
     Route: 016
     Dates: start: 20060310, end: 20060320

REACTIONS (1)
  - POSTOPERATIVE THROMBOSIS [None]
